FAERS Safety Report 6816549-8 (Version None)
Quarter: 2010Q3

REPORT INFORMATION
  Report Type: 
  Country: None (occurrence: None)
  Receive Date: 20100706
  Receipt Date: 20100628
  Transmission Date: 20110219
  Serious: Yes (Death, Hospitalization, Other)
  Sender: FDA-Public Use
  Company Number: PHEH2010US02400

PATIENT
  Sex: Female
  Weight: 45.351 kg

DRUGS (14)
  1. EXJADE [Suspect]
     Dosage: 1000 MG, QD
     Route: 048
     Dates: start: 20090305, end: 20100225
  2. LINEZOLID [Concomitant]
     Dosage: 600 MG, BID
  3. HYDROXYUREA [Concomitant]
     Dosage: 500 MG, QD
  4. FUROSEMIDE [Concomitant]
     Dosage: 20 MG, QD
  5. CARVEDILOL [Concomitant]
     Dosage: 18.75 MG, BID
  6. DIGOXIN [Concomitant]
     Dosage: .125 MG, QD
  7. DIGOXIN [Concomitant]
     Dosage: .250 MG, QD
  8. HYDROCODONE BITARTRATE [Concomitant]
     Dosage: 1 UNK, PRN
  9. PRINIVIL [Concomitant]
     Dosage: 5 MG, QD
  10. MAGNESIUM HYDROXIDE TAB [Concomitant]
  11. MAALOX                                  /NET/ [Concomitant]
  12. ZOFRAN [Concomitant]
     Dosage: 4 MG, UNK
  13. AMBIEN [Concomitant]
     Dosage: 5 MG, PRN
  14. VALTREX [Concomitant]
     Dosage: 500 MG, BID

REACTIONS (16)
  - ABSCESS [None]
  - ABSCESS DRAINAGE [None]
  - ANAEMIA [None]
  - BLOOD PRESSURE DECREASED [None]
  - CACHEXIA [None]
  - CARDIAC FAILURE CONGESTIVE [None]
  - CARDIAC MURMUR [None]
  - DEATH [None]
  - LYMPHADENOPATHY [None]
  - MALAISE [None]
  - MYELOPROLIFERATIVE DISORDER [None]
  - OEDEMA PERIPHERAL [None]
  - PURULENCE [None]
  - RALES [None]
  - STAPHYLOCOCCAL INFECTION [None]
  - THROMBOCYTOPENIA [None]
